FAERS Safety Report 6400507-1 (Version None)
Quarter: 2009Q4

REPORT INFORMATION
  Report Type: 
  Country: None (occurrence: None)
  Receive Date: 20091013
  Receipt Date: 20091013
  Transmission Date: 20100525
  Serious: Yes (Other)
  Sender: FDA-Public Use
  Company Number: None

PATIENT
  Age: 15 Year
  Sex: Male

DRUGS (1)
  1. REMICADE [Suspect]
     Indication: CROHN'S DISEASE
     Dates: start: 20091006, end: 20091006

REACTIONS (4)
  - COUGH [None]
  - FLUSHING [None]
  - INFUSION RELATED REACTION [None]
  - SENSATION OF FOREIGN BODY [None]
